FAERS Safety Report 6159845-2 (Version None)
Quarter: 2009Q2

REPORT INFORMATION
  Report Type: 
  Country: None (occurrence: None)
  Receive Date: 20090420
  Receipt Date: 20090415
  Transmission Date: 20091009
  Serious: Yes (Hospitalization)
  Sender: FDA-Public Use
  Company Number: US-AVENTIS-200818664US

PATIENT
  Sex: Female
  Weight: 68.04 kg

DRUGS (2)
  1. LOVENOX [Suspect]
     Indication: THROMBOSIS PROPHYLAXIS
     Dosage: DOSE: UNK
     Dates: end: 20081201
  2. HEPARIN [Concomitant]
     Dosage: DOSE: UNK

REACTIONS (5)
  - CEREBROVASCULAR ACCIDENT [None]
  - CYTOMEGALOVIRUS INFECTION [None]
  - ILEUS [None]
  - RECTAL HAEMORRHAGE [None]
  - THROMBOCYTOPENIA [None]
